FAERS Safety Report 5902186-6 (Version None)
Quarter: 2008Q3

REPORT INFORMATION
  Report Type: 
  Country: None (occurrence: None)
  Receive Date: 20080919
  Receipt Date: 20080730
  Transmission Date: 20090109
  Serious: No
  Sender: FDA-Public Use
  Company Number: US-WYE-H05329108

PATIENT

DRUGS (3)
  1. PRISTIQ [Suspect]
     Indication: DEPRESSION
     Dosage: 50 MG TO 100 MG, ORAL
     Route: 047
     Dates: start: 20080619
  2. AMBIEN [Concomitant]
  3. KLONOPIN [Concomitant]

REACTIONS (1)
  - ALOPECIA [None]
